FAERS Safety Report 6318564-X (Version None)
Quarter: 2009Q3

REPORT INFORMATION
  Report Type: 
  Country: None (occurrence: None)
  Receive Date: 20090821
  Receipt Date: 20090814
  Transmission Date: 20100115
  Serious: Yes (Other)
  Sender: FDA-Public Use
  Company Number: PHHY2009AT34391

PATIENT
  Sex: Male

DRUGS (4)
  1. RASILEZ [Suspect]
  2. RENITEC [Concomitant]
  3. CORENITEC [Concomitant]
  4. MOXONIDINE [Concomitant]

REACTIONS (2)
  - JOINT SWELLING [None]
  - POLYARTHRITIS [None]
